FAERS Safety Report 15354789 (Version 1)
Quarter: 2018Q4

REPORT INFORMATION
  Report Type: Spontaneous
  Country: FR (occurrence: FR)
  Receive Date: 20180906
  Receipt Date: 20180906
  Transmission Date: 20190204
  Serious: Yes (Other)
  Sender: FDA-Public Use
  Company Number: FR-KRKA, D.D., NOVO MESTO-2054668

PATIENT
  Age: 89 Year
  Sex: Female
  Weight: 69 kg

DRUGS (9)
  1. METFORMIN [Suspect]
     Active Substance: METFORMIN HYDROCHLORIDE
     Route: 048
  2. LEVOTHYROXINE. [Suspect]
     Active Substance: LEVOTHYROXINE
     Route: 048
  3. LANSOPRAZOLE. [Suspect]
     Active Substance: LANSOPRAZOLE
     Indication: GASTROOESOPHAGEAL REFLUX DISEASE
     Route: 048
  4. FUMAFER [Suspect]
     Active Substance: FERROUS FUMARATE
     Route: 048
     Dates: end: 20180813
  5. ELIQUIS [Suspect]
     Active Substance: APIXABAN
     Route: 048
     Dates: start: 20180320
  6. BISOPROLOL QUIVER [Suspect]
     Active Substance: BISOPROLOL FUMARATE
     Route: 048
  7. DAFALGAN CODEINE [Suspect]
     Active Substance: ACETAMINOPHEN\CODEINE PHOSPHATE
     Route: 048
  8. PRAVASTATINE [Suspect]
     Active Substance: PRAVASTATIN
     Route: 048
  9. MIANSERINE [Suspect]
     Active Substance: MIANSERIN HYDROCHLORIDE
     Route: 048

REACTIONS (1)
  - Hepatic cirrhosis [Not Recovered/Not Resolved]

NARRATIVE: CASE EVENT DATE: 20180814
